FAERS Safety Report 4500259-6 (Version None)
Quarter: 2004Q3

REPORT INFORMATION
  Report Type: 
  Country: None (occurrence: None)
  Receive Date: 20040927
  Receipt Date: 20040729
  Transmission Date: 20050211
  Serious: No
  Sender: FDA-Public Use
  Company Number: USA040772964

PATIENT
  Age: 6 Year
  Sex: Male
  Weight: 28 kg

DRUGS (3)
  1. STRATTERA [Suspect]
     Indication: ATTENTION DEFICIT/HYPERACTIVITY DISORDER
     Dosage: 18 MG DAY
     Dates: start: 20040713
  2. MULTI-VITAMINS [Concomitant]
  3. OMEGA-3 FATTY ACIDS (OMEGA-3 TRIGLYCERIDES) [Concomitant]

REACTIONS (6)
  - ANXIETY [None]
  - ATTENTION DEFICIT/HYPERACTIVITY DISORDER [None]
  - CRYING [None]
  - DRUG INEFFECTIVE [None]
  - FATIGUE [None]
  - OBSESSIVE-COMPULSIVE DISORDER [None]
